FAERS Safety Report 26162809 (Version 1)
Quarter: 2025Q4

REPORT INFORMATION
  Report Type: Spontaneous
  Country: GB (occurrence: GB)
  Receive Date: 20251216
  Receipt Date: 20251216
  Transmission Date: 20260118
  Serious: Yes (Other)
  Sender: MYLAN
  Company Number: None

PATIENT
  Age: 23 Year
  Sex: Female
  Weight: 82 kg

DRUGS (12)
  1. DOXYCYCLINE [Suspect]
     Active Substance: DOXYCYCLINE
     Indication: Ill-defined disorder
     Dosage: UNK (TAKE TWO ON THE FIRST DAY, THEN ONE EACH DAY)
  2. DOXYCYCLINE [Suspect]
     Active Substance: DOXYCYCLINE
     Dosage: UNK (TAKE TWO ON THE FIRST DAY, THEN ONE EACH DAY)
     Route: 065
  3. DOXYCYCLINE [Suspect]
     Active Substance: DOXYCYCLINE
     Dosage: UNK (TAKE TWO ON THE FIRST DAY, THEN ONE EACH DAY)
     Route: 065
  4. DOXYCYCLINE [Suspect]
     Active Substance: DOXYCYCLINE
     Dosage: UNK (TAKE TWO ON THE FIRST DAY, THEN ONE EACH DAY)
  5. DESOGESTREL [Concomitant]
     Active Substance: DESOGESTREL
     Indication: Ill-defined disorder
     Dosage: 1 DOSAGE FORM, QD (ONE TABLET DAILY AT THE SAME TIME EACH DAY)
     Dates: start: 20251128
  6. DESOGESTREL [Concomitant]
     Active Substance: DESOGESTREL
     Dosage: 1 DOSAGE FORM, QD (ONE TABLET DAILY AT THE SAME TIME EACH DAY)
     Route: 065
     Dates: start: 20251128
  7. DESOGESTREL [Concomitant]
     Active Substance: DESOGESTREL
     Dosage: 1 DOSAGE FORM, QD (ONE TABLET DAILY AT THE SAME TIME EACH DAY)
     Route: 065
     Dates: start: 20251128
  8. DESOGESTREL [Concomitant]
     Active Substance: DESOGESTREL
     Dosage: 1 DOSAGE FORM, QD (ONE TABLET DAILY AT THE SAME TIME EACH DAY)
     Dates: start: 20251128
  9. PROPRANOLOL [Concomitant]
     Active Substance: PROPRANOLOL HYDROCHLORIDE
     Indication: Ill-defined disorder
     Dosage: UNK, BID (1-2 BD)
     Dates: start: 20251205
  10. PROPRANOLOL [Concomitant]
     Active Substance: PROPRANOLOL HYDROCHLORIDE
     Dosage: UNK, BID (1-2 BD)
     Route: 065
     Dates: start: 20251205
  11. PROPRANOLOL [Concomitant]
     Active Substance: PROPRANOLOL HYDROCHLORIDE
     Dosage: UNK, BID (1-2 BD)
     Route: 065
     Dates: start: 20251205
  12. PROPRANOLOL [Concomitant]
     Active Substance: PROPRANOLOL HYDROCHLORIDE
     Dosage: UNK, BID (1-2 BD)
     Dates: start: 20251205

REACTIONS (2)
  - Malaise [Unknown]
  - Vomiting [Unknown]
